FAERS Safety Report 9304024 (Version 2)
Quarter: 2015Q2

REPORT INFORMATION
  Report Type: Spontaneous
  Country: JP (occurrence: JP)
  Receive Date: 20130522
  Receipt Date: 20150415
  Transmission Date: 20150821
  Serious: Yes (Death, Other)
  Sender: FDA-Public Use
  Company Number: PHHY2013JP050999

PATIENT
  Age: 74 Year
  Sex: Female

DRUGS (1)
  1. DOCETAXEL. [Suspect]
     Active Substance: DOCETAXEL
     Indication: PAPILLARY THYROID CANCER
     Dosage: 25 MG/M2, QW
     Route: 062

REACTIONS (2)
  - Accident [Fatal]
  - Neuropathy peripheral [Unknown]
